FAERS Safety Report 8572088-8 (Version None)
Quarter: 2012Q3

REPORT INFORMATION
  Report Type: 
  Country: None (occurrence: None)
  Receive Date: 20120806
  Receipt Date: 20120801
  Transmission Date: 20120928
  Serious: Yes (Other)
  Sender: FDA-Public Use
  Company Number: PHEH2012US014994

PATIENT
  Sex: Female

DRUGS (5)
  1. ASPIRIN [Concomitant]
  2. AMLODIPINE [Concomitant]
  3. VALTURNA [Suspect]
     Indication: HYPERTENSION
     Dosage: 1 DF, QD (150 MG ALIS AND 160 MG VALS)
     Route: 048
  4. METOPROLOL TARTRATE [Concomitant]
  5. PLAVIX [Concomitant]

REACTIONS (1)
  - ANGINA PECTORIS [None]
